FAERS Safety Report 16190130 (Version 1)
Quarter: 2019Q2

REPORT INFORMATION
  Report Type: Spontaneous
  Country: GB (occurrence: GB)
  Receive Date: 20190412
  Receipt Date: 20190412
  Transmission Date: 20190711
  Serious: Yes (Other)
  Sender: FDA-Public Use
  Company Number: GB-PFIZER INC-2019152239

PATIENT
  Age: 62 Year
  Sex: Female
  Weight: 60 kg

DRUGS (4)
  1. SERTRALINE HCL [Suspect]
     Active Substance: SERTRALINE HYDROCHLORIDE
     Dosage: 50 MG, 1X/DAY
     Dates: start: 20181108, end: 20190213
  2. LOFEPRAMINE [Concomitant]
     Active Substance: LOFEPRAMINE
     Dosage: 1 DF, 1X/DAY
     Dates: start: 20190213
  3. ESTRADIOL. [Concomitant]
     Active Substance: ESTRADIOL
     Dosage: 2 DF, 1X/DAY
     Route: 067
     Dates: start: 20170912
  4. RIZATRIPTAN. [Concomitant]
     Active Substance: RIZATRIPTAN
     Indication: MIGRAINE WITH AURA
     Dosage: 1 DF, AS NEEDED  (TAKE ONE AT ONSET OF AURA OR MIGRAINOUS HEADACHE)
     Dates: start: 20180607

REACTIONS (1)
  - Colitis microscopic [Recovering/Resolving]
